FAERS Safety Report 12693305 (Version 1)
Quarter: 2016Q3

REPORT INFORMATION
  Report Type: Spontaneous
  Country: US (occurrence: None)
  Receive Date: 20160826
  Receipt Date: 20160826
  Transmission Date: 20161109
  Serious: Yes (Other)
  Sender: FDA-Public Use
  Company Number: None

PATIENT
  Age: 55 Year
  Sex: Female
  Weight: 117.03 kg

DRUGS (1)
  1. CEFTRIAXONE, 1 GM [Suspect]
     Active Substance: CEFTRIAXONE
     Indication: SINUSITIS
     Route: 030
     Dates: start: 20160825

REACTIONS (2)
  - Chest discomfort [None]
  - Dyspnoea [None]

NARRATIVE: CASE EVENT DATE: 20160825
